FAERS Safety Report 15727588 (Version 1)
Quarter: 2018Q4

REPORT INFORMATION
  Report Type: Spontaneous
  Country: US (occurrence: US)
  Receive Date: 20181217
  Receipt Date: 20181217
  Transmission Date: 20190205
  Serious: No
  Sender: FDA-Public Use
  Company Number: US-NOVEN PHARMACEUTICALS, INC.-US2017001341

PATIENT

DRUGS (3)
  1. TIROSINT [Concomitant]
     Active Substance: LEVOTHYROXINE SODIUM
     Indication: HYPOTHYROIDISM
     Dosage: 0.50 UNK, UNKNOWN
  2. MINIVELLE [Suspect]
     Active Substance: ESTRADIOL
     Indication: MENOPAUSE
     Dosage: 0.1 MG, UNKNOWN
     Route: 062
     Dates: end: 201611
  3. MINIVELLE [Suspect]
     Active Substance: ESTRADIOL
     Dosage: 0.075 MG, UNKNOWN
     Route: 062
     Dates: start: 201611

REACTIONS (8)
  - Immune system disorder [Unknown]
  - Depressed mood [Unknown]
  - Hot flush [Unknown]
  - Mood swings [Unknown]
  - Vaginal haemorrhage [Recovering/Resolving]
  - Nasopharyngitis [Unknown]
  - Off label use [Not Recovered/Not Resolved]
  - Bone density abnormal [Unknown]
